FAERS Safety Report 15501125 (Version 1)
Quarter: 2018Q4

REPORT INFORMATION
  Report Type: Spontaneous
  Country: RU (occurrence: RU)
  Receive Date: 20181015
  Receipt Date: 20181015
  Transmission Date: 20190205
  Serious: Yes (Other)
  Sender: FDA-Public Use
  Company Number: RU-SHIRE-RU201828351

PATIENT

DRUGS (3)
  1. BERIATE [Suspect]
     Active Substance: ANTIHEMOPHILIC FACTOR HUMAN
     Indication: ARTHRALGIA
     Dosage: 2000 IU, UNK
     Dates: start: 20171015, end: 20171015
  2. OCTOFACTOR [Suspect]
     Active Substance: ANTIHEMOPHILIC FACTOR, HUMAN RECOMBINANT RESIDUES 743-1636 DELETED
     Indication: ARTHRALGIA
     Dosage: 2000 IU, UNK
     Dates: start: 20171017, end: 20171017
  3. ADVATE [Suspect]
     Active Substance: ANTIHEMOPHILIC FACTOR, HUMAN RECOMBINANT
     Indication: ARTHRALGIA
     Dosage: 2000 IU, UNK
     Route: 042
     Dates: start: 20171121, end: 20171121

REACTIONS (1)
  - Drug ineffective for unapproved indication [Recovering/Resolving]
